FAERS Safety Report 8601046-X (Version None)
Quarter: 2012Q3

REPORT INFORMATION
  Report Type: 
  Country: None (occurrence: None)
  Receive Date: 20120806
  Receipt Date: 20120731
  Transmission Date: 20120928
  Serious: Yes (Hospitalization, Other)
  Sender: FDA-Public Use
  Company Number: GER/UKI/12/0025256

PATIENT
  Age: 83 Year
  Sex: Male

DRUGS (6)
  1. ASPIRIN [Concomitant]
  2. DONEPEZIL HCL [Suspect]
     Indication: DEMENTIA ALZHEIMER'S TYPE
     Dosage: 10 MG, ORAL
     Route: 048
     Dates: end: 20120713
  3. CANDESARTAN CILEXETIL [Concomitant]
  4. PRAVASTATIN [Concomitant]
  5. QUININE SULFATE [Concomitant]
  6. AMLODIPINE [Concomitant]

REACTIONS (4)
  - DIARRHOEA [None]
  - BRADYCARDIA [None]
  - SYNCOPE [None]
  - FALL [None]
